FAERS Safety Report 10015857 (Version 4)
Quarter: 2014Q4

REPORT INFORMATION
  Report Type: Spontaneous
  Country: US (occurrence: US)
  Receive Date: 20140317
  Receipt Date: 20141121
  Transmission Date: 20150528
  Serious: Yes (Disabling)
  Sender: FDA-Public Use
  Company Number: US-009507513-1403USA005926

PATIENT
  Sex: Male

DRUGS (1)
  1. PROPECIA [Suspect]
     Active Substance: FINASTERIDE
     Indication: ALOPECIA
     Dosage: 1 MG, UNK
     Route: 048
     Dates: start: 2003, end: 200701

REACTIONS (11)
  - Muscle strain [Unknown]
  - Depression [Not Recovered/Not Resolved]
  - Ligament sprain [Unknown]
  - Anxiety [Not Recovered/Not Resolved]
  - Libido decreased [Unknown]
  - Ligament sprain [Unknown]
  - Erectile dysfunction [Not Recovered/Not Resolved]
  - Stress [Unknown]
  - Sexual dysfunction [Not Recovered/Not Resolved]
  - Joint dislocation [Unknown]
  - Tendon rupture [Unknown]

NARRATIVE: CASE EVENT DATE: 2003
